FAERS Safety Report 25602845 (Version 1)
Quarter: 2025Q3

REPORT INFORMATION
  Report Type: Spontaneous
  Country: TW (occurrence: TW)
  Receive Date: 20250724
  Receipt Date: 20250724
  Transmission Date: 20251020
  Serious: Yes (Other)
  Sender: PFIZER
  Company Number: TW-PFIZER INC-PV202500089156

PATIENT
  Sex: Male

DRUGS (2)
  1. CIBINQO [Suspect]
     Active Substance: ABROCITINIB
     Indication: Dermatitis atopic
     Dosage: 200 MG, QD
     Route: 048
     Dates: start: 20250625, end: 20250722
  2. CIBINQO [Suspect]
     Active Substance: ABROCITINIB
     Route: 048
     Dates: start: 20250723

REACTIONS (1)
  - Hepatocellular carcinoma [Not Recovered/Not Resolved]
